FAERS Safety Report 7257686-6 (Version None)
Quarter: 2011Q1

REPORT INFORMATION
  Report Type: 
  Country: None (occurrence: None)
  Receive Date: 20110129
  Receipt Date: 20100524
  Transmission Date: 20110831
  Serious: No
  Sender: FDA-Public Use
  Company Number: US-ABBOTT-10P-163-0646855-00

PATIENT
  Age: 72 Year
  Sex: Female

DRUGS (11)
  1. IRON [Concomitant]
     Indication: ANAEMIA
  2. METAMUCIL-2 [Concomitant]
     Indication: PRODUCT USED FOR UNKNOWN INDICATION
     Dosage: 1 TABLE SPOON DAILY
  3. HUMIRA [Suspect]
     Indication: CROHN'S DISEASE
     Dates: start: 20080501
  4. CALCIUM [Concomitant]
     Indication: PRODUCT USED FOR UNKNOWN INDICATION
     Dosage: 2-3 TEASPOONS DAILY
  5. EVISTA [Concomitant]
     Indication: BONE DISORDER
     Route: 048
  6. VITAMIN D [Concomitant]
     Indication: PRODUCT USED FOR UNKNOWN INDICATION
  7. OMEPRAZOLE [Concomitant]
     Indication: GASTROOESOPHAGEAL REFLUX DISEASE
     Route: 048
  8. COZAAR [Concomitant]
     Indication: HYPERTENSION
     Route: 048
  9. GEMFIBROZIL [Concomitant]
     Indication: HYPERTENSION
  10. MULTI-VITAMIN [Concomitant]
     Indication: PRODUCT USED FOR UNKNOWN INDICATION
     Route: 048
  11. ALIGN [Concomitant]
     Indication: CROHN'S DISEASE
     Route: 048

REACTIONS (2)
  - INJECTION SITE PAIN [None]
  - CROHN'S DISEASE [None]
